FAERS Safety Report 17514248 (Version 1)
Quarter: 2020Q1

REPORT INFORMATION
  Report Type: Spontaneous
  Country: DE (occurrence: DE)
  Receive Date: 20200306
  Receipt Date: 20200306
  Transmission Date: 20200409
  Serious: Yes (Hospitalization, Other)
  Sender: FDA-Public Use
  Company Number: DE-AUROBINDO-AUR-APL-2020-010855

PATIENT
  Sex: Male
  Weight: 119 kg

DRUGS (6)
  1. VALSARTAN. [Suspect]
     Active Substance: VALSARTAN
     Indication: PRODUCT USED FOR UNKNOWN INDICATION
     Dosage: 160 MILLIGRAM, ONCE A DAY
     Route: 065
     Dates: end: 2018
  2. FOLIC ACID. [Concomitant]
     Active Substance: FOLIC ACID
     Indication: PRODUCT USED FOR UNKNOWN INDICATION
     Dosage: UNK
     Route: 065
     Dates: start: 2018, end: 2019
  3. ACETYLSALICYLIC ACID [Concomitant]
     Active Substance: ASPIRIN
     Indication: PRODUCT USED FOR UNKNOWN INDICATION
     Dosage: UNK
     Route: 065
     Dates: start: 2013
  4. BISOPROLOL [Concomitant]
     Active Substance: BISOPROLOL
     Indication: PRODUCT USED FOR UNKNOWN INDICATION
     Dosage: UNK
     Route: 065
     Dates: start: 2013
  5. TAFLOTAN [Concomitant]
     Active Substance: TAFLUPROST
     Indication: PRODUCT USED FOR UNKNOWN INDICATION
     Dosage: UNK
     Route: 065
     Dates: start: 2015
  6. METHOTREXATE. [Concomitant]
     Active Substance: METHOTREXATE
     Indication: PRODUCT USED FOR UNKNOWN INDICATION
     Dosage: UNK
     Route: 065
     Dates: start: 2018, end: 2019

REACTIONS (17)
  - Idiopathic pulmonary fibrosis [Unknown]
  - Sleep apnoea syndrome [Unknown]
  - Hepatic steatosis [Unknown]
  - Arrhythmia [Unknown]
  - Lymphadenopathy [Unknown]
  - Chronic obstructive pulmonary disease [Unknown]
  - Arteriosclerosis coronary artery [Unknown]
  - Metastases to lymph nodes [Unknown]
  - Glaucoma [Unknown]
  - Aortic arteriosclerosis [Unknown]
  - Type 2 diabetes mellitus [Unknown]
  - Rheumatic disorder [Unknown]
  - Rheumatoid arthritis [Unknown]
  - Renal cyst [Unknown]
  - Tonsil cancer [Recovering/Resolving]
  - Cardiac steatosis [Unknown]
  - Goitre [Unknown]

NARRATIVE: CASE EVENT DATE: 20090816
